FAERS Safety Report 7732440-7 (Version None)
Quarter: 2011Q3

REPORT INFORMATION
  Report Type: 
  Country: None (occurrence: None)
  Receive Date: 20110906
  Receipt Date: 20110825
  Transmission Date: 20111222
  Serious: Yes (Other)
  Sender: FDA-Public Use
  Company Number: US-ASTRAZENECA-2010SE27889

PATIENT
  Age: 70 Year
  Sex: Female

DRUGS (2)
  1. ANTIBIOTIC [Concomitant]
  2. NEXIUM [Suspect]
     Route: 048

REACTIONS (9)
  - MALAISE [None]
  - OROPHARYNGEAL PAIN [None]
  - GASTRIC ULCER [None]
  - INSOMNIA [None]
  - GASTRIC ULCER HAEMORRHAGE [None]
  - COUGH [None]
  - DRUG DOSE OMISSION [None]
  - DYSPNOEA [None]
  - RESTLESSNESS [None]
